FAERS Safety Report 4992518-8 (Version None)
Quarter: 2006Q1

REPORT INFORMATION
  Report Type: 
  Country: None (occurrence: None)
  Receive Date: 20060314
  Receipt Date: 20060103
  Transmission Date: 20060701
  Serious: No
  Sender: FDA-Public Use
  Company Number: 2006-00007

PATIENT
  Sex: 0

DRUGS (1)
  1. VELCADE [Suspect]

REACTIONS (1)
  - NEUROPATHY PERIPHERAL [None]
